FAERS Safety Report 6805998-X (Version None)
Quarter: 2010Q2

REPORT INFORMATION
  Report Type: 
  Country: None (occurrence: None)
  Receive Date: 20100629
  Receipt Date: 20071128
  Transmission Date: 20101027
  Serious: Yes (Other)
  Sender: FDA-Public Use
  Company Number: US-PFIZER INC-2007101263

PATIENT
  Sex: Female
  Weight: 84.09 kg

DRUGS (3)
  1. ARTHROTEC [Suspect]
     Indication: INFLAMMATION
     Dates: start: 20071126
  2. ARTHROTEC [Suspect]
     Indication: SURGERY
  3. ANSAID [Concomitant]
     Dates: end: 20071101

REACTIONS (1)
  - RASH [None]
